FAERS Safety Report 18898901 (Version 5)
Quarter: 2021Q4

REPORT INFORMATION
  Report Type: Report from Study
  Country: US (occurrence: US)
  Receive Date: 20210216
  Receipt Date: 20211206
  Transmission Date: 20220303
  Serious: Yes (Other)
  Sender: FDA-Public Use
  Company Number: NVSC2021US035307

PATIENT
  Sex: Female

DRUGS (1)
  1. ENTRESTO [Suspect]
     Active Substance: SACUBITRIL\VALSARTAN
     Indication: Cardiac failure
     Dosage: 50 MG, BID (24/26 MG)
     Route: 048
     Dates: start: 202012

REACTIONS (8)
  - Ventricular tachycardia [Unknown]
  - Sleep apnoea syndrome [Unknown]
  - Hypersensitivity [Unknown]
  - Throat clearing [Unknown]
  - Cough [Unknown]
  - Product odour abnormal [Unknown]
  - Product availability issue [Unknown]
  - Product dose omission issue [Unknown]
